FAERS Safety Report 4518677-9 (Version None)
Quarter: 2004Q4

REPORT INFORMATION
  Report Type: 
  Country: None (occurrence: None)
  Receive Date: 20041201
  Receipt Date: 20041123
  Transmission Date: 20050328
  Serious: Yes (Hospitalization)
  Sender: FDA-Public Use
  Company Number: 105484ISR

PATIENT
  Age: 60 Year
  Sex: Female

DRUGS (6)
  1. DILTIAZEM [Suspect]
     Dosage: 300 MILLIGRAM ORAL
     Route: 048
     Dates: start: 20020101
  2. URAPIDIL [Suspect]
     Dosage: 120 MILLIGRAM ORAL
     Route: 048
     Dates: start: 20020101
  3. RAMIPRIL [Suspect]
     Dosage: 10 MILLIGRAM ORAL
     Route: 048
     Dates: start: 20020101
  4. SERTRALINE HYDROCHLORIDE [Suspect]
     Dosage: 50 MILLIGRAM ORAL
     Route: 048
     Dates: start: 20020101
  5. SIMVASTATIN [Suspect]
     Dosage: 30 MILLIGRAM ORAL
     Route: 048
     Dates: start: 20040101, end: 20041029
  6. ACARBOSE [Suspect]
     Dosage: 150 MILLIGRAM ORAL
     Route: 048
     Dates: start: 20020901

REACTIONS (3)
  - ALANINE AMINOTRANSFERASE INCREASED [None]
  - ASPARTATE AMINOTRANSFERASE INCREASED [None]
  - PANCREATITIS ACUTE [None]
